FAERS Safety Report 7720462-1 (Version None)
Quarter: 2011Q3

REPORT INFORMATION
  Report Type: 
  Country: None (occurrence: None)
  Receive Date: 20110831
  Receipt Date: 20110824
  Transmission Date: 20111222
  Serious: Yes (Hospitalization)
  Sender: FDA-Public Use
  Company Number: JP-BRACCO-005142

PATIENT
  Age: 57 Year
  Sex: Female
  Weight: 65 kg

DRUGS (12)
  1. MEILAX [Concomitant]
  2. RESTAMIN [Concomitant]
  3. IOPAMIDOL [Suspect]
     Indication: BREAST CANCER
     Route: 041
     Dates: start: 20110516, end: 20110516
  4. CLOTIAZEPAM [Concomitant]
  5. SOLU-CORTEF [Concomitant]
     Dates: start: 20110516
  6. IOPAMIDOL [Suspect]
     Indication: COMPUTERISED TOMOGRAM
     Route: 041
     Dates: start: 20110509, end: 20110509
  7. TENORMIN [Concomitant]
  8. PAXIL [Concomitant]
  9. FLUNITRAZEPAM [Concomitant]
  10. PURSENNID [Concomitant]
  11. SUNRYTHM [Concomitant]
  12. GOODMIN [Concomitant]

REACTIONS (1)
  - ERYTHEMA [None]
